FAERS Safety Report 7720600-0 (Version None)
Quarter: 2011Q3

REPORT INFORMATION
  Report Type: 
  Country: None (occurrence: None)
  Receive Date: 20110831
  Receipt Date: 20110817
  Transmission Date: 20111222
  Serious: Yes (Hospitalization, Other)
  Sender: FDA-Public Use
  Company Number: US-ELI_LILLY_AND_COMPANY-US201107005049

PATIENT
  Sex: Female

DRUGS (3)
  1. FORTEO [Suspect]
     Dosage: 20 UG, QD
  2. FORTEO [Suspect]
     Indication: OSTEOPOROSIS
     Dosage: 20 UG, QD
     Route: 065
     Dates: start: 20090801
  3. DULCOLAX [Concomitant]

REACTIONS (10)
  - DIARRHOEA [None]
  - DIVERTICULUM [None]
  - CHILLS [None]
  - DIVERTICULITIS [None]
  - CHEST PAIN [None]
  - GASTROINTESTINAL HAEMORRHAGE [None]
  - TREMOR [None]
  - WHITE BLOOD CELL COUNT INCREASED [None]
  - SLEEP DISORDER DUE TO A GENERAL MEDICAL CONDITION [None]
  - NAUSEA [None]
